FAERS Safety Report 6309399-2 (Version None)
Quarter: 2009Q3

REPORT INFORMATION
  Report Type: 
  Country: None (occurrence: None)
  Receive Date: 20090814
  Receipt Date: 20090807
  Transmission Date: 20100115
  Serious: Yes (Hospitalization)
  Sender: FDA-Public Use
  Company Number: US-ROCHE-649153

PATIENT
  Age: 67 Year
  Sex: Male

DRUGS (16)
  1. CAPECITABINE [Suspect]
     Indication: COLON CANCER
     Dosage: FIRST 14 DAYS OF 21 DAY CYCLE
     Route: 048
     Dates: start: 20090410
  2. CAPECITABINE [Suspect]
     Route: 048
     Dates: start: 20090501
  3. CAPECITABINE [Suspect]
     Route: 048
     Dates: start: 20090522
  4. CAPECITABINE [Suspect]
     Route: 048
     Dates: start: 20090702, end: 20090718
  5. CAPECITABINE [Suspect]
     Route: 048
     Dates: start: 20090724
  6. BEVACIZUMAB [Suspect]
     Indication: COLON CANCER
     Route: 065
     Dates: start: 20090612
  7. BEVACIZUMAB [Suspect]
     Dosage: STOP DATE REPORTED AS 2009
     Route: 065
     Dates: start: 20090702
  8. ELOXATIN [Suspect]
     Indication: COLON CANCER
     Route: 042
     Dates: start: 20090410
  9. ELOXATIN [Suspect]
     Route: 042
     Dates: start: 20090501
  10. ELOXATIN [Suspect]
     Route: 042
     Dates: start: 20090522
  11. ELOXATIN [Suspect]
     Route: 042
     Dates: start: 20090702, end: 20090702
  12. ELOXATIN [Suspect]
     Route: 042
     Dates: start: 20090724
  13. ALOXI [Concomitant]
     Indication: NAUSEA
     Route: 065
  14. REQUIP [Concomitant]
     Indication: PARKINSON'S DISEASE
     Route: 065
  15. SINEMET [Concomitant]
     Indication: PARKINSON'S DISEASE
     Route: 065
     Dates: start: 20090201
  16. XANAX [Concomitant]
     Indication: ANXIETY
     Route: 065
     Dates: start: 20090401

REACTIONS (8)
  - EYELID PTOSIS [None]
  - GASTROINTESTINAL DISORDER [None]
  - HYPOAESTHESIA ORAL [None]
  - LACRIMATION INCREASED [None]
  - PARAESTHESIA ORAL [None]
  - SPEECH DISORDER [None]
  - TRANSIENT ISCHAEMIC ATTACK [None]
  - TREMOR [None]
